FAERS Safety Report 26144075 (Version 2)
Quarter: 2025Q4

REPORT INFORMATION
  Report Type: Spontaneous
  Country: US (occurrence: US)
  Receive Date: 20251211
  Receipt Date: 20251223
  Transmission Date: 20260118
  Serious: Yes (Hospitalization, Other)
  Sender: RANBAXY
  Company Number: US-SUN PHARMACEUTICAL INDUSTRIES INC-2025R1-540320

PATIENT
  Age: 44 Year
  Sex: Male

DRUGS (10)
  1. CLOZAPINE [Suspect]
     Active Substance: CLOZAPINE
     Indication: Antipsychotic therapy
     Dosage: 500 TOTAL DAILY
     Route: 065
  2. CLOZAPINE [Suspect]
     Active Substance: CLOZAPINE
     Dosage: 125 MG DAILY
     Route: 065
  3. PROPRANOLOL [Suspect]
     Active Substance: PROPRANOLOL HYDROCHLORIDE
     Indication: Product used for unknown indication
     Dosage: ER 60 MG DAILY
     Route: 048
  4. PALIPERIDONE [Concomitant]
     Active Substance: PALIPERIDONE
     Indication: Antipsychotic therapy
     Dosage: 156 MG LAI MONTHLY
     Route: 065
  5. PALIPERIDONE [Concomitant]
     Active Substance: PALIPERIDONE
     Dosage: 3 MILLIGRAM
     Route: 065
  6. DULOXETINE [Concomitant]
     Active Substance: DULOXETINE
     Indication: Antipsychotic therapy
     Dosage: 120 MILLIGRAM, DAILY
     Route: 065
  7. LORAZEPAM [Concomitant]
     Active Substance: LORAZEPAM
     Indication: Antipsychotic therapy
     Dosage: 1 MILLIGRAM, TID
     Route: 065
  8. LUMATEPERONE [Concomitant]
     Active Substance: LUMATEPERONE
     Indication: Antipsychotic therapy
     Dosage: 21 MILLIGRAM, DAILY
     Route: 065
  9. VENLAFAXINE [Concomitant]
     Active Substance: VENLAFAXINE HYDROCHLORIDE
     Indication: Antipsychotic therapy
     Dosage: 112.5 MILLIGRAM, DAILY
     Route: 065
  10. BENZTROPINE [Concomitant]
     Active Substance: BENZTROPINE
     Indication: Antipsychotic therapy
     Dosage: 0.5 MG BID
     Route: 065

REACTIONS (5)
  - Duodenal ulcer [Unknown]
  - Mental status changes [Unknown]
  - Delirium [Unknown]
  - Toxicity to various agents [Unknown]
  - Drug level increased [Unknown]
